FAERS Safety Report 15313310 (Version 1)
Quarter: 2018Q3

REPORT INFORMATION
  Report Type: Spontaneous
  Country: US (occurrence: US)
  Receive Date: 20180823
  Receipt Date: 20180823
  Transmission Date: 20181010
  Serious: Yes (Other)
  Sender: FDA-Public Use
  Company Number: US-PRINSTON PHARMACEUTICAL INC.-2018PRN00830

PATIENT
  Age: 72 Year
  Sex: Female
  Weight: 50.79 kg

DRUGS (3)
  1. LEVOXIN [Concomitant]
     Active Substance: LEVOFLOXACIN
  2. VALSARTAN. [Suspect]
     Active Substance: VALSARTAN
     Indication: BLOOD PRESSURE INCREASED
     Dosage: 80 MG, 1X/DAY
     Route: 048
  3. VERAPAMIL [Concomitant]
     Active Substance: VERAPAMIL HYDROCHLORIDE

REACTIONS (2)
  - Haemoglobin decreased [Unknown]
  - Breast cancer [Unknown]

NARRATIVE: CASE EVENT DATE: 20170524
